FAERS Safety Report 18560765 (Version 6)
Quarter: 2021Q1

REPORT INFORMATION
  Report Type: Report from Study
  Country: BR (occurrence: BR)
  Receive Date: 20201130
  Receipt Date: 20210205
  Transmission Date: 20210419
  Serious: Yes (Life-Threatening, Hospitalization, Other)
  Sender: FDA-Public Use
  Company Number: BR-GILEAD-2020-0503685

PATIENT
  Age: 63 Year
  Sex: Female
  Weight: 97 kg

DRUGS (112)
  1. REMDESIVIR. [Suspect]
     Active Substance: REMDESIVIR
     Indication: COVID-19 PNEUMONIA
     Dosage: 200 MG
     Route: 042
     Dates: start: 20201015, end: 20201015
  2. TOCILIZUMAB. [Suspect]
     Active Substance: TOCILIZUMAB
     Dosage: MOST RECENT DOSE OF TOCILIZUMAB PRIOR TO ADVERSE EVENT ONSET 15 OCT 2020 AT 13:38
     Route: 042
     Dates: start: 20201015
  3. OXYGEN. [Concomitant]
     Active Substance: OXYGEN
     Route: 007
     Dates: start: 20201026
  4. OXYGEN. [Concomitant]
     Active Substance: OXYGEN
     Route: 007
     Dates: start: 20201028
  5. OXYGEN. [Concomitant]
     Active Substance: OXYGEN
     Dosage: 35 %
     Route: 007
     Dates: start: 20201017
  6. OXYGEN. [Concomitant]
     Active Substance: OXYGEN
     Dosage: 6
     Dates: start: 20201119
  7. OXYGEN. [Concomitant]
     Active Substance: OXYGEN
     Dosage: 40 %
     Route: 007
     Dates: start: 20201026
  8. OXYGEN. [Concomitant]
     Active Substance: OXYGEN
     Dosage: 25 %
     Route: 007
     Dates: start: 20201128
  9. OXYGEN. [Concomitant]
     Active Substance: OXYGEN
     Dosage: 30 %
     Route: 007
     Dates: start: 20201129
  10. OXYGEN. [Concomitant]
     Active Substance: OXYGEN
     Dosage: 03
     Dates: start: 20201114
  11. OXYGEN. [Concomitant]
     Active Substance: OXYGEN
     Dosage: 05
     Dates: start: 20201104
  12. OXYGEN. [Concomitant]
     Active Substance: OXYGEN
     Dosage: 100 %
     Route: 007
     Dates: start: 20201015
  13. OXYGEN. [Concomitant]
     Active Substance: OXYGEN
     Dosage: TRANSTRACHEAL
     Dates: start: 20201101
  14. OXYGEN. [Concomitant]
     Active Substance: OXYGEN
     Route: 007
     Dates: start: 20201128
  15. OXYGEN. [Concomitant]
     Active Substance: OXYGEN
     Route: 007
     Dates: start: 20201023
  16. OXYGEN. [Concomitant]
     Active Substance: OXYGEN
     Route: 007
     Dates: start: 20201017
  17. OXYGEN. [Concomitant]
     Active Substance: OXYGEN
     Dosage: 02
     Dates: start: 20201106
  18. OXYGEN. [Concomitant]
     Active Substance: OXYGEN
     Dosage: 1
     Dates: start: 20201111
  19. OXYGEN. [Concomitant]
     Active Substance: OXYGEN
     Dosage: 02
     Dates: start: 20201108
  20. OXYGEN. [Concomitant]
     Active Substance: OXYGEN
     Dosage: 60 %
     Route: 007
     Dates: start: 20201130
  21. OXYGEN. [Concomitant]
     Active Substance: OXYGEN
     Dosage: 50 %
     Route: 007
     Dates: start: 20201018
  22. OXYGEN. [Concomitant]
     Active Substance: OXYGEN
     Dosage: TRANSTRACHEAL
     Dates: start: 20201101
  23. OXYGEN. [Concomitant]
     Active Substance: OXYGEN
     Dosage: 6
     Dates: start: 20201122
  24. OXYGEN. [Concomitant]
     Active Substance: OXYGEN
     Dosage: 50 %
     Route: 007
     Dates: start: 20201123
  25. OXYGEN. [Concomitant]
     Active Substance: OXYGEN
     Dosage: 25 %
     Route: 007
     Dates: start: 20201126
  26. ENOXAPARIN [Concomitant]
     Active Substance: ENOXAPARIN
     Indication: EMBOLISM VENOUS
     Dosage: 40 MG
     Dates: start: 20201014
  27. CEFTRIAXONE. [Concomitant]
     Active Substance: CEFTRIAXONE
     Indication: BACTERIAL INFECTION
     Dosage: 2 G
     Dates: start: 20201014
  28. OXYGEN. [Concomitant]
     Active Substance: OXYGEN
     Route: 007
     Dates: start: 20201015
  29. OXYGEN. [Concomitant]
     Active Substance: OXYGEN
     Route: 007
     Dates: start: 20201125
  30. OXYGEN. [Concomitant]
     Active Substance: OXYGEN
     Dosage: 04
     Dates: start: 20201121
  31. OXYGEN. [Concomitant]
     Active Substance: OXYGEN
     Route: 007
     Dates: start: 20201021
  32. OXYGEN. [Concomitant]
     Active Substance: OXYGEN
     Route: 007
     Dates: start: 20201128
  33. OXYGEN. [Concomitant]
     Active Substance: OXYGEN
     Route: 007
     Dates: start: 20201124
  34. OXYGEN. [Concomitant]
     Active Substance: OXYGEN
     Dosage: TRANSTRACHEAL
     Dates: start: 20201102
  35. OXYGEN. [Concomitant]
     Active Substance: OXYGEN
     Dosage: TRANSTRACHEAL
     Dates: start: 20201030
  36. OXYGEN. [Concomitant]
     Active Substance: OXYGEN
     Dosage: 40 %
     Route: 007
     Dates: start: 20201024
  37. OXYGEN. [Concomitant]
     Active Substance: OXYGEN
     Dosage: 03
     Dates: start: 20201115
  38. OXYGEN. [Concomitant]
     Active Substance: OXYGEN
     Dosage: 35 %
     Route: 007
     Dates: start: 20201029
  39. OXYGEN. [Concomitant]
     Active Substance: OXYGEN
     Dosage: 2
     Dates: start: 20201109
  40. OXYGEN. [Concomitant]
     Active Substance: OXYGEN
     Dosage: 03
     Dates: start: 20201108
  41. OXYGEN. [Concomitant]
     Active Substance: OXYGEN
     Dosage: 01
     Dates: start: 20201103
  42. OXYGEN. [Concomitant]
     Active Substance: OXYGEN
     Dosage: 30 %
     Route: 007
     Dates: start: 20201102
  43. OXYGEN. [Concomitant]
     Active Substance: OXYGEN
     Dosage: 50 %
     Dates: start: 20201019
  44. FENTANYL. [Concomitant]
     Active Substance: FENTANYL
     Indication: SEDATION
     Dates: start: 20201015, end: 20201030
  45. TOCILIZUMAB. [Suspect]
     Active Substance: TOCILIZUMAB
     Indication: COVID-19 PNEUMONIA
     Dosage: MOST RECENT DOSE OF TOCILIZUMAB PRIOR TO ADVERSE EVENT ONSET 15 OCT 2020 AT 12 38
     Route: 042
     Dates: start: 20201015
  46. AZITHROMYCIN ANHYDROUS. [Concomitant]
     Active Substance: AZITHROMYCIN ANHYDROUS
     Indication: COVID-19
     Dosage: 500 MG
     Dates: start: 20201014
  47. OXYGEN. [Concomitant]
     Active Substance: OXYGEN
     Dosage: 25 %
     Route: 007
     Dates: start: 20201126
  48. OXYGEN. [Concomitant]
     Active Substance: OXYGEN
     Route: 007
     Dates: start: 20201129
  49. OXYGEN. [Concomitant]
     Active Substance: OXYGEN
     Route: 007
     Dates: start: 20201022
  50. OXYGEN. [Concomitant]
     Active Substance: OXYGEN
     Dosage: 3
     Dates: start: 20201122
  51. OXYGEN. [Concomitant]
     Active Substance: OXYGEN
     Dosage: 2
     Dates: start: 20201110
  52. OXYGEN. [Concomitant]
     Active Substance: OXYGEN
     Route: 007
     Dates: start: 20201019
  53. OXYGEN. [Concomitant]
     Active Substance: OXYGEN
     Route: 007
     Dates: start: 20201025
  54. OXYGEN. [Concomitant]
     Active Substance: OXYGEN
     Dosage: 12  L/MIN
     Route: 055
     Dates: start: 20201014
  55. OXYGEN. [Concomitant]
     Active Substance: OXYGEN
     Dosage: 2
     Dates: start: 20201110
  56. OXYGEN. [Concomitant]
     Active Substance: OXYGEN
     Dosage: 2
     Dates: start: 20201105
  57. OXYGEN. [Concomitant]
     Active Substance: OXYGEN
     Dosage: 05
     Dates: start: 20201120
  58. NORADRENALINE [NOREPINEPHRINE] [Concomitant]
     Active Substance: NOREPINEPHRINE
     Indication: HYPOTENSION
     Dates: start: 20201015, end: 20201030
  59. DIPIRONE [Concomitant]
     Active Substance: METAMIZOLE SODIUM
     Indication: COVID-19
     Dosage: 500 MG
     Dates: start: 20201014
  60. ATORVASTATIN [Concomitant]
     Active Substance: ATORVASTATIN
     Indication: DYSLIPIDAEMIA
     Dosage: 10 MG
     Dates: start: 20201014
  61. OXYGEN. [Concomitant]
     Active Substance: OXYGEN
     Route: 007
     Dates: start: 20201123
  62. OXYGEN. [Concomitant]
     Active Substance: OXYGEN
     Route: 007
     Dates: start: 20201016
  63. OXYGEN. [Concomitant]
     Active Substance: OXYGEN
     Dosage: 06
     Dates: start: 20201117
  64. OXYGEN. [Concomitant]
     Active Substance: OXYGEN
     Dosage: TRANSTRACHEAL
     Dates: start: 20201031
  65. OXYGEN. [Concomitant]
     Active Substance: OXYGEN
     Route: 007
     Dates: start: 20201018
  66. OXYGEN. [Concomitant]
     Active Substance: OXYGEN
     Dosage: 4
     Dates: start: 20201104
  67. OXYGEN. [Concomitant]
     Active Substance: OXYGEN
     Dosage: 4
     Dates: start: 20201103
  68. OXYGEN. [Concomitant]
     Active Substance: OXYGEN
     Route: 007
     Dates: start: 20201127
  69. OXYGEN. [Concomitant]
     Active Substance: OXYGEN
     Dosage: 3
     Dates: start: 20201105
  70. OXYGEN. [Concomitant]
     Active Substance: OXYGEN
     Dosage: 04
     Dates: start: 20201116
  71. OXYGEN. [Concomitant]
     Active Substance: OXYGEN
     Dosage: 07
     Dates: start: 20201117
  72. OXYGEN. [Concomitant]
     Active Substance: OXYGEN
     Dosage: 1
     Dates: start: 20201112
  73. OXYGEN. [Concomitant]
     Active Substance: OXYGEN
     Dosage: 01
     Dates: start: 20201107
  74. OXYGEN. [Concomitant]
     Active Substance: OXYGEN
     Dosage: 25 %
     Route: 007
     Dates: start: 20201124
  75. OXYGEN. [Concomitant]
     Active Substance: OXYGEN
     Dosage: 100 %
     Route: 007
     Dates: start: 20201016
  76. OXYGEN. [Concomitant]
     Active Substance: OXYGEN
     Dosage: TRANSTRACHEAL
     Dates: start: 20201031
  77. OXYGEN. [Concomitant]
     Active Substance: OXYGEN
     Dosage: TRANSTRACHEAL
     Dates: start: 20201025
  78. OXYGEN. [Concomitant]
     Active Substance: OXYGEN
     Dosage: 25 %
     Route: 007
     Dates: start: 20201210
  79. REMDESIVIR. [Suspect]
     Active Substance: REMDESIVIR
     Dosage: 100 MG
     Route: 042
     Dates: start: 20201016, end: 20201024
  80. OXYGEN. [Concomitant]
     Active Substance: OXYGEN
     Dosage: 15
     Dates: start: 20201118
  81. OXYGEN. [Concomitant]
     Active Substance: OXYGEN
     Route: 007
     Dates: start: 20201029
  82. OXYGEN. [Concomitant]
     Active Substance: OXYGEN
     Dosage: 10
     Dates: start: 20201119
  83. OXYGEN. [Concomitant]
     Active Substance: OXYGEN
     Route: 007
     Dates: start: 20201027
  84. OXYGEN. [Concomitant]
     Active Substance: OXYGEN
     Route: 007
     Dates: start: 20201130
  85. OXYGEN. [Concomitant]
     Active Substance: OXYGEN
     Dosage: 100 %
     Route: 007
     Dates: start: 20201015
  86. OXYGEN. [Concomitant]
     Active Substance: OXYGEN
     Dosage: 50 %
     Route: 007
     Dates: start: 20201021
  87. OXYGEN. [Concomitant]
     Active Substance: OXYGEN
     Dosage: 25 %
     Route: 007
     Dates: start: 20201128
  88. OXYGEN. [Concomitant]
     Active Substance: OXYGEN
     Dosage: 60 %
     Route: 007
     Dates: start: 20201023
  89. OXYGEN. [Concomitant]
     Active Substance: OXYGEN
     Dosage: 1
     Dates: start: 20201111
  90. OXYGEN. [Concomitant]
     Active Substance: OXYGEN
     Dosage: 03
     Dates: start: 20201121
  91. OXYGEN. [Concomitant]
     Active Substance: OXYGEN
     Dosage: 50 %
     Route: 007
     Dates: start: 20201205
  92. METHYLPREDNISOLONE. [Concomitant]
     Active Substance: METHYLPREDNISOLONE
     Indication: COVID-19
     Dosage: 62.5 MG
     Dates: start: 20201014
  93. OXYGEN. [Concomitant]
     Active Substance: OXYGEN
     Route: 007
     Dates: start: 20201020
  94. OXYGEN. [Concomitant]
     Active Substance: OXYGEN
     Dosage: 05
     Dates: start: 20201120
  95. OXYGEN. [Concomitant]
     Active Substance: OXYGEN
     Dosage: 03
     Dates: start: 20201115
  96. OXYGEN. [Concomitant]
     Active Substance: OXYGEN
     Dosage: 01
     Dates: start: 20201113
  97. OXYGEN. [Concomitant]
     Active Substance: OXYGEN
     Dosage: 03
     Dates: start: 20201109
  98. OXYGEN. [Concomitant]
     Active Substance: OXYGEN
     Route: 007
     Dates: start: 20201024
  99. OXYGEN. [Concomitant]
     Active Substance: OXYGEN
     Dosage: 3
     Dates: start: 20201114
  100. OXYGEN. [Concomitant]
     Active Substance: OXYGEN
     Dosage: 01
     Dates: start: 20201107
  101. OXYGEN. [Concomitant]
     Active Substance: OXYGEN
     Dosage: 50 %
     Route: 007
     Dates: start: 20201020
  102. OXYGEN. [Concomitant]
     Active Substance: OXYGEN
     Dosage: 60 %
     Route: 007
     Dates: start: 20201022
  103. OMEPRAZOLE. [Concomitant]
     Active Substance: OMEPRAZOLE
     Indication: GASTRIC ULCER
     Dosage: 40 MG
     Dates: start: 20201014
  104. OXYGEN. [Concomitant]
     Active Substance: OXYGEN
     Dosage: 1
     Dates: start: 20201112
  105. OXYGEN. [Concomitant]
     Active Substance: OXYGEN
     Dosage: 04
     Dates: start: 20201116
  106. OXYGEN. [Concomitant]
     Active Substance: OXYGEN
     Dosage: 40 %
     Route: 007
     Dates: start: 20201027
  107. OXYGEN. [Concomitant]
     Active Substance: OXYGEN
     Dosage: 35 %
     Route: 007
     Dates: start: 20201028
  108. OXYGEN. [Concomitant]
     Active Substance: OXYGEN
     Dosage: 4
     Dates: start: 20201103
  109. OXYGEN. [Concomitant]
     Active Substance: OXYGEN
     Dosage: 30 %
     Route: 007
     Dates: start: 20201125
  110. OXYGEN. [Concomitant]
     Active Substance: OXYGEN
     Dosage: 30 %
     Route: 007
     Dates: start: 20201030
  111. OXYGEN. [Concomitant]
     Active Substance: OXYGEN
     Dosage: 25 %
     Route: 007
     Dates: start: 20201127
  112. OXYGEN. [Concomitant]
     Active Substance: OXYGEN
     Dosage: 5
     Dates: start: 20201118

REACTIONS (5)
  - Liver injury [Recovering/Resolving]
  - Sepsis [Recovered/Resolved]
  - Urinary tract infection [Recovered/Resolved]
  - Epistaxis [Recovering/Resolving]
  - Hypoxic-ischaemic encephalopathy [Recovering/Resolving]

NARRATIVE: CASE EVENT DATE: 20201101
